FAERS Safety Report 6849217-7 (Version None)
Quarter: 2010Q3

REPORT INFORMATION
  Report Type: 
  Country: None (occurrence: None)
  Receive Date: 20100716
  Receipt Date: 20071102
  Transmission Date: 20110219
  Serious: No
  Sender: FDA-Public Use
  Company Number: US-PFIZER INC-2007081125

PATIENT
  Sex: Female

DRUGS (9)
  1. CHANTIX [Suspect]
     Indication: SMOKING CESSATION THERAPY
     Route: 048
     Dates: start: 20070101, end: 20070101
  2. ALL OTHER THERAPEUTIC PRODUCTS [Interacting]
  3. DEPAKOTE [Concomitant]
  4. LORAZEPAM [Concomitant]
  5. SEROQUEL [Concomitant]
  6. CYMBALTA [Concomitant]
  7. METFORMIN HCL [Concomitant]
  8. NEXIUM [Concomitant]
  9. ESTRADIOL [Concomitant]

REACTIONS (2)
  - DEPRESSION [None]
  - DRUG INTERACTION [None]
